FAERS Safety Report 21885897 (Version 1)
Quarter: 2023Q1

REPORT INFORMATION
  Report Type: Spontaneous
  Country: FR (occurrence: FR)
  Receive Date: 20230119
  Receipt Date: 20230119
  Transmission Date: 20230418
  Serious: Yes (Hospitalization)
  Sender: FDA-Public Use
  Company Number: None

PATIENT
  Age: 40 Year
  Sex: Female

DRUGS (1)
  1. KEYTRUDA [Suspect]
     Active Substance: PEMBROLIZUMAB
     Indication: Product used for unknown indication
     Dosage: 200MG/21 DAYS
     Route: 042
     Dates: start: 20220316, end: 20220407

REACTIONS (1)
  - Pubic pain [Recovered/Resolved]

NARRATIVE: CASE EVENT DATE: 20220420
